FAERS Safety Report 5911684-0 (Version None)
Quarter: 2008Q4

REPORT INFORMATION
  Report Type: 
  Country: None (occurrence: None)
  Receive Date: 20081007
  Receipt Date: 20080926
  Transmission Date: 20090506
  Serious: Yes (Other)
  Sender: FDA-Public Use
  Company Number: US-ELI_LILLY_AND_COMPANY-US200810000576

PATIENT
  Age: 65 Year
  Sex: Female

DRUGS (15)
  1. BYETTA [Suspect]
     Indication: TYPE 2 DIABETES MELLITUS
     Dosage: 5 UG, 2/D
     Route: 058
     Dates: start: 20060501
  2. BYETTA [Suspect]
     Dosage: 10 UG, 2/D
     Route: 058
  3. METFORMIN HCL [Concomitant]
     Dosage: 500 MG, 2/D
     Route: 065
  4. AMARYL [Concomitant]
     Dosage: 2 MG, DAILY (1/D)
     Route: 065
  5. WARFARIN SODIUM [Concomitant]
     Dosage: 2.5 MG, DAILY (1/D)
     Route: 065
  6. CLINDAMYCIN HCL [Concomitant]
     Dosage: 600 MG, AS NEEDED
     Route: 065
  7. TOPROL-XL [Concomitant]
     Dosage: 100 MG, DAILY (1/D)
     Route: 065
  8. POTASSIUM CHLORIDE [Concomitant]
     Dosage: 10 MEQ, QOD
     Route: 065
  9. LOTENSIN [Concomitant]
     Dosage: UNK, 2/D
     Route: 065
  10. GLUCOSAMINE SULFATE [Concomitant]
     Dosage: 750 MG, 2/D
     Route: 065
  11. LOVAZA [Concomitant]
     Dosage: 1000 MG, DAILY (1/D)
     Route: 065
  12. DIGOXIN [Concomitant]
     Dosage: 250 UG, DAILY (1/D)
     Route: 065
  13. AMLODIPINE [Concomitant]
     Dosage: 5 MG, DAILY (1/D)
     Route: 065
  14. ALLERDRYL [Concomitant]
     Dosage: 50 MG, AS NEEDED
     Route: 065
  15. ACETAMINOPHEN W/ CODEINE [Concomitant]
     Dosage: UNK, AS NEEDED
     Route: 065

REACTIONS (2)
  - BLOOD TRIGLYCERIDES INCREASED [None]
  - PANCREATITIS [None]
